FAERS Safety Report 5744911-3 (Version None)
Quarter: 2008Q2

REPORT INFORMATION
  Report Type: 
  Country: None (occurrence: None)
  Receive Date: 20080516
  Receipt Date: 20080506
  Transmission Date: 20081010
  Serious: Yes (Disabling)
  Sender: FDA-Public Use
  Company Number: 2008G1000013

PATIENT
  Age: 86 Year
  Sex: Male

DRUGS (1)
  1. TEMERIT /01339101/ (NEBIVOLOL) [Suspect]

REACTIONS (1)
  - POLYMYALGIA RHEUMATICA [None]
